FAERS Safety Report 21908910 (Version 2)
Quarter: 2023Q1

REPORT INFORMATION
  Report Type: Spontaneous
  Country: BE (occurrence: BE)
  Receive Date: 20230125
  Receipt Date: 20230209
  Transmission Date: 20230417
  Serious: Yes (Other)
  Sender: FDA-Public Use
  Company Number: BE-ROCHE-3266272

PATIENT

DRUGS (2)
  1. SYLVANT [Suspect]
     Active Substance: SILTUXIMAB
     Indication: Castleman^s disease
     Dosage: UNKNOWN
     Route: 065
  2. RITUXIMAB [Suspect]
     Active Substance: RITUXIMAB
     Indication: Castleman^s disease
     Dosage: UNKNOWN
     Route: 065

REACTIONS (2)
  - Autoimmune haemolytic anaemia [Recovered/Resolved]
  - Platelet count decreased [Recovered/Resolved]
